FAERS Safety Report 4809180-7 (Version None)
Quarter: 2005Q4

REPORT INFORMATION
  Report Type: 
  Country: None (occurrence: None)
  Receive Date: 20051021
  Receipt Date: 20030429
  Transmission Date: 20060501
  Serious: No
  Sender: FDA-Public Use
  Company Number: EWC030534772

PATIENT
  Age: 29 Year
  Sex: Male
  Weight: 53 kg

DRUGS (3)
  1. OLANZAPINE [Suspect]
     Indication: PSYCHOTIC DISORDER
     Dosage: 5 MG/OTHER
     Route: 050
     Dates: start: 20020612, end: 20020612
  2. HALDOL (HALOPERIDOL) [Concomitant]
  3. LORAZEPAM [Concomitant]

REACTIONS (3)
  - LABORATORY TEST INTERFERENCE [None]
  - LEUKOPENIA [None]
  - WHITE BLOOD CELL COUNT INCREASED [None]
